FAERS Safety Report 9943125 (Version 1)
Quarter: 2014Q1

REPORT INFORMATION
  Report Type: Spontaneous
  Country: GB (occurrence: GB)
  Receive Date: 20140303
  Receipt Date: 20140303
  Transmission Date: 20141002
  Serious: Yes (Other)
  Sender: FDA-Public Use
  Company Number: PHHY2014GB024209

PATIENT
  Age: 63 Year
  Sex: Male

DRUGS (1)
  1. RANITIDINE [Suspect]

REACTIONS (3)
  - Barrett^s oesophagus [Unknown]
  - Duodenitis [Unknown]
  - Diarrhoea [Unknown]
